FAERS Safety Report 9102735 (Version 1)
Quarter: 2013Q1

REPORT INFORMATION
  Report Type: Spontaneous
  Country: CA (occurrence: CA)
  Receive Date: 20130219
  Receipt Date: 20130219
  Transmission Date: 20140127
  Serious: Yes (Hospitalization)
  Sender: FDA-Public Use
  Company Number: CA-PFIZER INC-2013040743

PATIENT
  Age: 66 Year
  Sex: Male
  Weight: 90.7 kg

DRUGS (4)
  1. ZIPRASIDONE HCL [Suspect]
     Indication: SCHIZOAFFECTIVE DISORDER
     Dosage: 60 MG, 2X/DAY
     Route: 048
     Dates: start: 20110929, end: 201208
  2. ASA [Concomitant]
     Dosage: 81 MG, 1X/DAY
  3. SIMVASTATIN [Concomitant]
     Dosage: 20 MG, 1X/DAY
  4. METFORMIN [Concomitant]
     Dosage: 500 MG, 2X/DAY

REACTIONS (3)
  - Fall [Recovered/Resolved]
  - Orthostatic hypotension [Recovered/Resolved]
  - Balance disorder [Recovered/Resolved]
